FAERS Safety Report 5969890-5 (Version None)
Quarter: 2008Q4

REPORT INFORMATION
  Report Type: 
  Country: None (occurrence: None)
  Receive Date: 20081126
  Receipt Date: 20081114
  Transmission Date: 20090506
  Serious: Yes (Death, Hospitalization)
  Sender: FDA-Public Use
  Company Number: US-PFIZER INC-2008096613

PATIENT
  Sex: Male

DRUGS (11)
  1. ALPRAZOLAM [Suspect]
     Indication: ANXIETY
     Route: 048
  2. MORPHINE HCL ELIXIR [Suspect]
  3. BLINDED ALPRAZOLAM [Suspect]
     Indication: HEPATITIS C
     Route: 048
     Dates: start: 20080319
  4. OXYCODONE HCL [Suspect]
  5. ATENOLOL [Concomitant]
     Indication: HYPERTENSIVE HEART DISEASE
     Dosage: DAILY DOSE:50MG-FREQ:DAILY
     Dates: start: 20071001
  6. PRILOSEC [Concomitant]
     Dates: start: 20050101, end: 20080416
  7. LEXAPRO [Concomitant]
     Dosage: DAILY DOSE:10MG-FREQ:DAILY
     Route: 048
     Dates: start: 20080421
  8. XANAX [Concomitant]
     Dates: start: 20080421
  9. PERCOCET [Concomitant]
     Indication: PAIN
     Dates: start: 20080421
  10. PROTONIX [Concomitant]
     Dosage: DAILY DOSE:40MG-FREQ:DAILY
     Dates: start: 20080421
  11. CHANTIX [Concomitant]
     Dates: start: 20080421

REACTIONS (3)
  - AMYOTROPHIC LATERAL SCLEROSIS [None]
  - CHEST PAIN [None]
  - DRUG TOXICITY [None]
